FAERS Safety Report 5098368-9 (Version None)
Quarter: 2006Q3

REPORT INFORMATION
  Report Type: 
  Country: None (occurrence: None)
  Receive Date: 20060906
  Receipt Date: 20060328
  Transmission Date: 20061208
  Serious: Yes (Other)
  Sender: FDA-Public Use
  Company Number: GB-AVENTIS-200613916GDDC

PATIENT
  Age: 37 Year
  Sex: Female

DRUGS (3)
  1. LANTUS [Suspect]
     Indication: DIABETES MELLITUS NON-INSULIN-DEPENDENT
     Route: 058
     Dates: start: 20060101
  2. NOVORAPID [Concomitant]
     Indication: DIABETES MELLITUS
     Route: 058
     Dates: start: 20060101
  3. THYROXINE [Concomitant]
     Indication: HYPOTHYROIDISM

REACTIONS (11)
  - ABORTION SPONTANEOUS [None]
  - BLOOD THYROID STIMULATING HORMONE INCREASED [None]
  - DEVICE LEAKAGE [None]
  - DIABETES MELLITUS INADEQUATE CONTROL [None]
  - DRUG EXPOSURE DURING PREGNANCY [None]
  - FOETAL GROWTH RETARDATION [None]
  - GLYCOSYLATED HAEMOGLOBIN INCREASED [None]
  - HYPOGLYCAEMIA [None]
  - OLIGOHYDRAMNIOS [None]
  - THYROXINE FREE INCREASED [None]
  - TREATMENT NONCOMPLIANCE [None]
